FAERS Safety Report 21725839 (Version 1)
Quarter: 2022Q4

REPORT INFORMATION
  Report Type: Spontaneous
  Country: CA (occurrence: CA)
  Receive Date: 20221214
  Receipt Date: 20221214
  Transmission Date: 20230113
  Serious: Yes (Other)
  Sender: FDA-Public Use
  Company Number: CA-JNJFOC-20221219526

PATIENT
  Age: 66 Year
  Sex: Male
  Weight: 90 kg

DRUGS (12)
  1. REMICADE [Suspect]
     Active Substance: INFLIXIMAB
     Indication: Crohn^s disease
     Dosage: CYCLICAL
     Route: 041
  2. BUPROPION [Concomitant]
     Active Substance: BUPROPION
  3. CALCIUM MAGNESIUM CARBONATE [Concomitant]
     Active Substance: CALCIUM MAGNESIUM CARBONATE
  4. CANDESARTAN [Concomitant]
     Active Substance: CANDESARTAN
  5. .ALPHA.-TOCOPHEROL, D- [Concomitant]
     Active Substance: .ALPHA.-TOCOPHEROL, D-
  6. IRON SUCROSE [Concomitant]
     Active Substance: IRON SUCROSE
  7. METOPROLOL [Concomitant]
     Active Substance: METOPROLOL
  8. PROBIOTICS NOS [Concomitant]
     Active Substance: PROBIOTICS NOS
  9. RABEPRAZOLE [Concomitant]
     Active Substance: RABEPRAZOLE
  10. VITAMIN B COMPLEX INJ [Concomitant]
  11. CHOLECALCIFEROL [Concomitant]
     Active Substance: CHOLECALCIFEROL
  12. ZINC [Concomitant]
     Active Substance: ZINC

REACTIONS (24)
  - Arthritis [Not Recovered/Not Resolved]
  - Asthenia [Not Recovered/Not Resolved]
  - Blood bilirubin decreased [Not Recovered/Not Resolved]
  - C-reactive protein decreased [Not Recovered/Not Resolved]
  - Exostosis [Not Recovered/Not Resolved]
  - Eye inflammation [Not Recovered/Not Resolved]
  - Fistula [Not Recovered/Not Resolved]
  - Fistula discharge [Not Recovered/Not Resolved]
  - Flatulence [Not Recovered/Not Resolved]
  - Gastrooesophageal reflux disease [Not Recovered/Not Resolved]
  - Gout [Not Recovered/Not Resolved]
  - Hepatic steatosis [Not Recovered/Not Resolved]
  - Inflammation [Not Recovered/Not Resolved]
  - Iron binding capacity total increased [Not Recovered/Not Resolved]
  - Muscle spasms [Not Recovered/Not Resolved]
  - Presyncope [Not Recovered/Not Resolved]
  - Serum ferritin decreased [Not Recovered/Not Resolved]
  - Weight decreased [Not Recovered/Not Resolved]
  - Condition aggravated [Not Recovered/Not Resolved]
  - Arthralgia [Not Recovered/Not Resolved]
  - Hypertension [Not Recovered/Not Resolved]
  - Pain [Not Recovered/Not Resolved]
  - Inappropriate schedule of product administration [Not Recovered/Not Resolved]
  - Off label use [Not Recovered/Not Resolved]
